FAERS Safety Report 6697005-7 (Version None)
Quarter: 2010Q2

REPORT INFORMATION
  Report Type: 
  Country: None (occurrence: None)
  Receive Date: 20100426
  Receipt Date: 20100421
  Transmission Date: 20101027
  Serious: Yes (Hospitalization, Other)
  Sender: FDA-Public Use
  Company Number: US-BRISTOL-MYERS SQUIBB COMPANY-15074750

PATIENT
  Age: 61 Year
  Sex: Male
  Weight: 99 kg

DRUGS (14)
  1. CISPLATIN [Suspect]
     Indication: RENAL FAILURE
     Dosage: ALSO ON 13JUL09(75MG/M2)
     Dates: start: 20090622
  2. RADIOTHERAPY [Suspect]
  3. LISINOPRIL AND HYDROCHLOROTHIAZIDE [Concomitant]
     Dosage: TABS
     Dates: start: 20090427
  4. ONDANSETRON [Concomitant]
     Dosage: TABS
     Dates: start: 20090622
  5. FAMOTIDINE [Concomitant]
     Dates: start: 20090427
  6. COMPAZINE [Concomitant]
     Dates: start: 20090622
  7. ECOTRIN [Concomitant]
     Dates: start: 20090627
  8. EMEND [Concomitant]
     Dates: start: 20090622
  9. DECADRON [Concomitant]
     Dates: start: 20090622
  10. OXYCODONE HCL [Concomitant]
     Dosage: TABS
     Dates: start: 20090706
  11. VITAMINS [Concomitant]
  12. MAALOX [Concomitant]
     Dates: start: 20090706
  13. LIDOCAINE [Concomitant]
     Dates: start: 20090706
  14. PERCOCET [Concomitant]
     Indication: PAIN

REACTIONS (7)
  - HYPOTENSION [None]
  - INFECTION [None]
  - MENTAL STATUS CHANGES [None]
  - PYREXIA [None]
  - RENAL FAILURE ACUTE [None]
  - SEPSIS [None]
  - TACHYCARDIA [None]
